FAERS Safety Report 4981612-3 (Version None)
Quarter: 2006Q2

REPORT INFORMATION
  Report Type: 
  Country: None (occurrence: None)
  Receive Date: 20060425
  Receipt Date: 20041203
  Transmission Date: 20061013
  Serious: Yes (Other)
  Sender: FDA-Public Use
  Company Number: PHEH2004US12966

PATIENT
  Age: 57 Year
  Sex: Male

DRUGS (1)
  1. ZOMETA [Suspect]
     Indication: MULTIPLE MYELOMA
     Dosage: 4 MG, MONTHLY
     Dates: start: 20001101, end: 20050201

REACTIONS (4)
  - BONE DISORDER [None]
  - BONE FRAGMENTATION [None]
  - MOUTH ULCERATION [None]
  - OSTEONECROSIS [None]
